FAERS Safety Report 12961922 (Version 3)
Quarter: 2017Q1

REPORT INFORMATION
  Report Type: Report from Study
  Country: US (occurrence: US)
  Receive Date: 20161121
  Receipt Date: 20170329
  Transmission Date: 20170428
  Serious: Yes (Hospitalization)
  Sender: FDA-Public Use
  Company Number: US-TARO-2016TAR00954

PATIENT
  Age: 69 Year
  Sex: Male
  Weight: 73.16 kg

DRUGS (2)
  1. AZELAIC ACID TOPICAL GEL 15% [Suspect]
     Active Substance: AZELAIC ACID
     Indication: ROSACEA
     Dosage: 1 APPLICATION, BID
     Route: 061
     Dates: start: 20161011, end: 20161107
  2. SPERMICIDE [Concomitant]
     Indication: CONTRACEPTION
     Dosage: 1 APPLICATION, AS NEEDED
     Route: 061
     Dates: start: 2016

REACTIONS (3)
  - Gastrointestinal wall thickening [None]
  - Immune thrombocytopenic purpura [Recovered/Resolved]
  - Renal cyst haemorrhage [None]

NARRATIVE: CASE EVENT DATE: 20161107
